FAERS Safety Report 4756851-7 (Version None)
Quarter: 2005Q3

REPORT INFORMATION
  Report Type: 
  Country: None (occurrence: None)
  Receive Date: 20050830
  Receipt Date: 20050822
  Transmission Date: 20060218
  Serious: Yes (Death)
  Sender: FDA-Public Use
  Company Number: US-JNJFOC-20050801942

PATIENT
  Sex: Female
  Weight: 56.7 kg

DRUGS (2)
  1. DURAGESIC-100 [Suspect]
     Indication: CANCER PAIN
     Route: 062
  2. LOVENOX [Concomitant]
     Indication: DRUG USE FOR UNKNOWN INDICATION

REACTIONS (2)
  - NO ADVERSE DRUG EFFECT [None]
  - OVARIAN CANCER METASTATIC [None]
